FAERS Safety Report 5083516-7 (Version None)
Quarter: 2006Q3

REPORT INFORMATION
  Report Type: 
  Country: None (occurrence: None)
  Receive Date: 20060818
  Receipt Date: 20060807
  Transmission Date: 20061208
  Serious: Yes (Other)
  Sender: FDA-Public Use
  Company Number: JP-JNJFOC-20060703468

PATIENT
  Age: 54 Year
  Sex: Female

DRUGS (5)
  1. ITRIZOLE [Suspect]
     Indication: NAIL TINEA
     Route: 048
  2. PRAVASTATIN SODIUM [Concomitant]
     Route: 065
  3. TRIAZOLAM [Concomitant]
     Route: 065
  4. AMLODIPINE BESYLATE [Concomitant]
     Route: 065
  5. TELMISARTAN [Concomitant]
     Route: 065

REACTIONS (1)
  - DEAFNESS NEUROSENSORY [None]
